FAERS Safety Report 9558557 (Version 1)
Quarter: 2013Q3

REPORT INFORMATION
  Report Type: Spontaneous
  Country: GB (occurrence: GB)
  Receive Date: 20130926
  Receipt Date: 20130926
  Transmission Date: 20140515
  Serious: Yes (Hospitalization)
  Sender: FDA-Public Use
  Company Number: PHHY2013GB104452

PATIENT
  Age: 77 Year
  Sex: Female

DRUGS (10)
  1. SIMVASTATIN [Suspect]
     Dosage: 40 MG QD
     Route: 048
     Dates: start: 2008
  2. PREDNISOLONE [Concomitant]
  3. CLOPIDOGREL [Concomitant]
  4. DIGOXIN [Concomitant]
  5. LANSOPRAZOLE [Concomitant]
  6. RAMIPRIL [Concomitant]
  7. ALENDRONIC ACID [Concomitant]
  8. LEVOTHYROXINE [Concomitant]
  9. ADCAL-D3 [Concomitant]
  10. FENTANYL [Concomitant]
     Dosage: 250 UKN, UNK

REACTIONS (1)
  - Pulmonary fibrosis [Not Recovered/Not Resolved]
